FAERS Safety Report 18107905 (Version 1)
Quarter: 2020Q3

REPORT INFORMATION
  Report Type: Spontaneous
  Country: US (occurrence: US)
  Receive Date: 20200804
  Receipt Date: 20200804
  Transmission Date: 20201103
  Serious: Yes (Other)
  Sender: FDA-Public Use
  Company Number: None

PATIENT
  Age: 65 Year
  Sex: Female
  Weight: 78.75 kg

DRUGS (27)
  1. METFORMIN [Concomitant]
     Active Substance: METFORMIN HYDROCHLORIDE
  2. HYDROCORTISONE CREAM [Concomitant]
     Active Substance: HYDROCORTISONE
  3. LEVOTHYROXINE SANDOZ [Concomitant]
     Active Substance: LEVOTHYROXINE
  4. MAGNESIUM [Concomitant]
     Active Substance: MAGNESIUM
  5. BURDOCK [Concomitant]
  6. VITAMIN B12 [Concomitant]
     Active Substance: CYANOCOBALAMIN
  7. GINGER. [Concomitant]
     Active Substance: GINGER
  8. EVENING PRIMROSE OIL [Concomitant]
     Active Substance: EVENING PRIMROSE OIL\HERBALS
  9. POTASSIUM [Concomitant]
     Active Substance: POTASSIUM
  10. FENUGREEK [Concomitant]
     Active Substance: FENUGREEK SEED
  11. MANAGESE [Concomitant]
  12. PROBIOTICS [Concomitant]
     Active Substance: PROBIOTICS NOS
  13. LISINOPRIL. [Concomitant]
     Active Substance: LISINOPRIL
  14. GABA [Concomitant]
     Active Substance: HOMEOPATHICS
  15. DIGESTIVE ENZYMES [Concomitant]
     Active Substance: UNSPECIFIED INGREDIENT
  16. ZINC. [Concomitant]
     Active Substance: ZINC
  17. EUTHYROX [Suspect]
     Active Substance: LEVOTHYROXINE SODIUM
     Indication: AUTOIMMUNE THYROIDITIS
     Route: 048
     Dates: start: 20200703, end: 20200730
  18. COREG [Concomitant]
     Active Substance: CARVEDILOL
  19. CALCIUM [Concomitant]
     Active Substance: CALCIUM
  20. B6 [Concomitant]
     Active Substance: PYRIDOXINE HYDROCHLORIDE
  21. CURCURMIN [Concomitant]
  22. KEPPRA [Concomitant]
     Active Substance: LEVETIRACETAM
  23. ECHINACIA [Concomitant]
  24. FOLIC ACID. [Concomitant]
     Active Substance: FOLIC ACID
  25. VITAMIN D3 [Concomitant]
     Active Substance: CHOLECALCIFEROL
  26. NORI SEAWEED [Concomitant]
  27. SELENIUM [Concomitant]
     Active Substance: SELENIUM

REACTIONS (8)
  - Pruritus [None]
  - Sleep disorder [None]
  - Dry throat [None]
  - Product substitution issue [None]
  - Documented hypersensitivity to administered product [None]
  - Hypersensitivity [None]
  - Pollakiuria [None]
  - Inflammation [None]

NARRATIVE: CASE EVENT DATE: 20200730
